FAERS Safety Report 9923511 (Version 1)
Quarter: 2014Q1

REPORT INFORMATION
  Report Type: Spontaneous
  Country: US (occurrence: US)
  Receive Date: 20140225
  Receipt Date: 20140225
  Transmission Date: 20141002
  Serious: No
  Sender: FDA-Public Use
  Company Number: US-AMGEN-USASP2013082660

PATIENT
  Age: 58 Year
  Sex: Female

DRUGS (1)
  1. ENBREL [Suspect]
     Indication: PSORIATIC ARTHROPATHY
     Dosage: 25 MG, 2 TIMES/WK
     Route: 065
     Dates: start: 20050101

REACTIONS (5)
  - Local swelling [Recovered/Resolved]
  - Psoriatic arthropathy [Not Recovered/Not Resolved]
  - Alopecia [Recovered/Resolved]
  - Hepatic enzyme abnormal [Recovered/Resolved]
  - Blood pressure abnormal [Unknown]
